FAERS Safety Report 8502984-9 (Version None)
Quarter: 2012Q3

REPORT INFORMATION
  Report Type: 
  Country: None (occurrence: None)
  Receive Date: 20120711
  Receipt Date: 20120704
  Transmission Date: 20120928
  Serious: Yes (Death, Other)
  Sender: FDA-Public Use
  Company Number: PHHY2012JP057132

PATIENT
  Age: 7 Year
  Sex: Female

DRUGS (13)
  1. METHOTREXATE [Concomitant]
     Dosage: 10 MG/M2,
  2. METHYLPREDNISOLONE [Concomitant]
     Dosage: 2 MG/KG, QD
  3. FLUDARABINE PHOSPHATE [Concomitant]
     Dosage: 30 MG/M2, 6QD
  4. ANTI-THYMOCYTE GLOBULIN NOS [Concomitant]
     Dosage: 1.25 MG/KG, PER TWO DAYS
  5. METHYLPREDNISOLONE [Concomitant]
     Dosage: 1 MG/KG, QD
  6. INFLIXIMAB [Concomitant]
     Dosage: 5 MG/KG, BID
  7. METHOTREXATE [Concomitant]
     Dosage: 7.5 MG/M2,
  8. MELPHALAN HYDROCHLORIDE [Concomitant]
     Dosage: 70 MG/M2, QD
  9. CYCLOSPORINE [Concomitant]
     Dosage: 3 MG/KG, QD
  10. DEFERASIROX [Suspect]
     Indication: IRON OVERLOAD
  11. CYCLOPHOSPHAMIDE [Concomitant]
     Dosage: 50 MG/KG, QD
  12. TACROLIMUS [Concomitant]
     Dosage: 0.02 MG/KG, QD
  13. METHOTREXATE [Concomitant]
     Dosage: 10 MG/M2,

REACTIONS (17)
  - RENAL FAILURE [None]
  - GALLBLADDER ABSCESS [None]
  - GRAFT VERSUS HOST DISEASE [None]
  - PLATELET COUNT DECREASED [None]
  - RASH [None]
  - THROMBOTIC MICROANGIOPATHY [None]
  - INFLAMMATION [None]
  - C-REACTIVE PROTEIN INCREASED [None]
  - FEBRILE NEUTROPENIA [None]
  - ANAEMIA [None]
  - MELAENA [None]
  - VIRAL INFECTION [None]
  - ILEUS PARALYTIC [None]
  - DIARRHOEA [None]
  - GASTROINTESTINAL HAEMORRHAGE [None]
  - PYREXIA [None]
  - ABDOMINAL DISTENSION [None]
